FAERS Safety Report 23255471 (Version 1)
Quarter: 2023Q4

REPORT INFORMATION
  Report Type: Report from Study
  Country: JP (occurrence: JP)
  Receive Date: 20231203
  Receipt Date: 20231203
  Transmission Date: 20240110
  Serious: Yes (Hospitalization, Other)
  Sender: FDA-Public Use
  Company Number: JP-TAKEDA-2023TJP015416

PATIENT
  Age: 84 Year
  Sex: Male

DRUGS (1)
  1. PANITUMUMAB [Suspect]
     Active Substance: PANITUMUMAB
     Indication: Colon cancer recurrent
     Dosage: UNK UNK, Q2HR
     Route: 042
     Dates: start: 20171225

REACTIONS (6)
  - Fall [Unknown]
  - Contusion [Unknown]
  - Influenza [Unknown]
  - Dermatitis acneiform [Unknown]
  - Paronychia [Unknown]
  - Oedema peripheral [Unknown]
